FAERS Safety Report 7388607-3 (Version None)
Quarter: 2011Q2

REPORT INFORMATION
  Report Type: 
  Country: None (occurrence: None)
  Receive Date: 20110401
  Receipt Date: 20110322
  Transmission Date: 20111010
  Serious: Yes (Other)
  Sender: FDA-Public Use
  Company Number: US-PFIZER INC-2008062697

PATIENT
  Sex: Female
  Weight: 54 kg

DRUGS (4)
  1. PREMARIN [Suspect]
     Indication: HORMONE REPLACEMENT THERAPY
     Dosage: UNK,
  2. CYCRIN [Suspect]
     Indication: HORMONE REPLACEMENT THERAPY
     Dosage: UNK,
  3. PROVERA [Suspect]
     Indication: HORMONE REPLACEMENT THERAPY
     Dosage: UNK,
     Route: 048
  4. PREMPRO [Suspect]
     Indication: HORMONE REPLACEMENT THERAPY
     Dosage: UNK,
     Route: 048

REACTIONS (1)
  - BREAST CANCER FEMALE [None]
